FAERS Safety Report 25157595 (Version 3)
Quarter: 2025Q2

REPORT INFORMATION
  Report Type: Spontaneous
  Country: JP (occurrence: JP)
  Receive Date: 20250403
  Receipt Date: 20250508
  Transmission Date: 20250717
  Serious: Yes (Hospitalization, Other)
  Sender: MERCK SHARP & DOHME LLC
  Company Number: JP-MSD-M2024-20398

PATIENT
  Age: 7 Decade
  Sex: Female

DRUGS (1)
  1. KEYTRUDA [Suspect]
     Active Substance: PEMBROLIZUMAB
     Indication: Triple negative breast cancer
     Dosage: DOSE DESCRIPTION : 200 MILLIGRAM, Q3W?DAILY DOSE : 9.4 MILLIGRAM?REGIMEN DOSE : 200  MILLIGRAM
     Route: 041
     Dates: start: 202312, end: 202405

REACTIONS (5)
  - Immune-mediated hepatic disorder [Recovered/Resolved]
  - Rash [Recovering/Resolving]
  - Immune-mediated renal disorder [Recovered/Resolved]
  - Pyrexia [Recovering/Resolving]
  - Post procedural infection [Recovered/Resolved]

NARRATIVE: CASE EVENT DATE: 20240501
